FAERS Safety Report 4334884-2 (Version None)
Quarter: 2004Q2

REPORT INFORMATION
  Report Type: 
  Country: None (occurrence: None)
  Receive Date: 20040405
  Receipt Date: 20040322
  Transmission Date: 20050107
  Serious: Yes (Hospitalization, Other)
  Sender: FDA-Public Use
  Company Number: 233398

PATIENT
  Age: 1 Day
  Sex: Female
  Weight: 4.7 kg

DRUGS (3)
  1. NOVORAPID PENFILL? 3ML (NOVORAPID PENFILL? 3ML) (INSULIN ASPART) SOLUT [Suspect]
     Indication: DIABETES MELLITUS INSULIN-DEPENDENT
     Dosage: 6 + 4 IU, QD, INTRAUTERINE
     Route: 015
     Dates: start: 20030314
  2. PROTAPHANE PENFILL (INSULIN HUMAN) [Concomitant]
  3. ANAESTHETICS, GENERAL [Concomitant]

REACTIONS (2)
  - HYPOGLYCAEMIA NEONATAL [None]
  - MATERNAL DRUGS AFFECTING FOETUS [None]
